FAERS Safety Report 25005468 (Version 1)
Quarter: 2025Q1

REPORT INFORMATION
  Report Type: Spontaneous
  Country: IN (occurrence: IN)
  Receive Date: 20250224
  Receipt Date: 20250224
  Transmission Date: 20250408
  Serious: Yes (Other)
  Sender: SANDOZ
  Company Number: IN-002147023-NVSC2025IN028490

PATIENT
  Age: 55 Year
  Sex: Female

DRUGS (2)
  1. BORTEZOMIB [Suspect]
     Active Substance: BORTEZOMIB
     Indication: Plasma cell myeloma
     Route: 065
  2. ZOLEDRONIC ACID [Suspect]
     Active Substance: ZOLEDRONIC ACID
     Indication: Plasma cell myeloma
     Route: 065

REACTIONS (5)
  - Metastases to central nervous system [Unknown]
  - Plasma cell myeloma [Unknown]
  - Eyelid ptosis [Unknown]
  - Headache [Unknown]
  - Vomiting [Unknown]
